FAERS Safety Report 8296343-4 (Version None)
Quarter: 2012Q1

REPORT INFORMATION
  Report Type: 
  Country: None (occurrence: None)
  Receive Date: 20120322
  Receipt Date: 20120209
  Transmission Date: 20120608
  Serious: Yes (Hospitalization)
  Sender: FDA-Public Use
  Company Number: UTC-014587

PATIENT
  Age: 78 Year
  Sex: Male

DRUGS (5)
  1. OXYGEN (OXYGEN) [Concomitant]
  2. TRACLEER [Concomitant]
  3. TYVASO [Suspect]
     Indication: PULMONARY ARTERIAL HYPERTENSION
     Dosage: 54-72 MICROGRAMS, INHALATION
     Route: 055
     Dates: start: 20110615
  4. DIURETICS (DIURETICS) [Concomitant]
  5. PLAVIX [Concomitant]

REACTIONS (2)
  - RESPIRATORY ARREST [None]
  - DYSPNOEA [None]
